FAERS Safety Report 8790908 (Version 3)
Quarter: 2013Q3

REPORT INFORMATION
  Report Type: Spontaneous
  Country: US (occurrence: None)
  Receive Date: 20120907
  Receipt Date: 20130815
  Transmission Date: 20140515
  Serious: Yes (Other)
  Sender: FDA-Public Use
  Company Number: ADR-2012-01607

PATIENT
  Age: 74 Year
  Sex: Male

DRUGS (4)
  1. BACLOFEN [Suspect]
     Indication: PAIN
  2. BACLOFEN [Suspect]
     Indication: PAIN
  3. CLONIDINE [Concomitant]
  4. DILAUDID [Concomitant]

REACTIONS (22)
  - Device power source issue [None]
  - Pain in extremity [None]
  - Influenza like illness [None]
  - Nausea [None]
  - Hot flush [None]
  - Affect lability [None]
  - Incorrect dose administered by device [None]
  - Feeling abnormal [None]
  - Withdrawal syndrome [None]
  - Musculoskeletal pain [None]
  - Back pain [None]
  - Crying [None]
  - Incoherent [None]
  - Somnolence [None]
  - Pain [None]
  - Device physical property issue [None]
  - Malaise [None]
  - Drug withdrawal syndrome [None]
  - Somnolence [None]
  - Musculoskeletal pain [None]
  - Pain in extremity [None]
  - No therapeutic response [None]
